FAERS Safety Report 17603178 (Version 3)
Quarter: 2020Q3

REPORT INFORMATION
  Report Type: Report from Study
  Country: CA (occurrence: CA)
  Receive Date: 20200331
  Receipt Date: 20200714
  Transmission Date: 20201102
  Serious: Yes (Hospitalization)
  Sender: FDA-Public Use
  Company Number: NVSC2019CA023055

PATIENT
  Age: 3 Year
  Sex: Female
  Weight: 16 kg

DRUGS (12)
  1. TRAMETINIB [Suspect]
     Active Substance: TRAMETINIB
     Dosage: 0.35 MG, QD
     Route: 048
     Dates: start: 20191106
  2. TRAMETINIB [Suspect]
     Active Substance: TRAMETINIB
     Dosage: 0.35 MG, QD
     Route: 048
     Dates: start: 20191114
  3. TRAMETINIB [Suspect]
     Active Substance: TRAMETINIB
     Dosage: 0.25 MG, QD
     Route: 048
     Dates: start: 20191202
  4. TRAMETINIB [Suspect]
     Active Substance: TRAMETINIB
     Dosage: 03 MG, QD
     Route: 048
     Dates: end: 20200627
  5. TRAMETINIB [Suspect]
     Active Substance: TRAMETINIB
     Dosage: 0.25 UNK
     Route: 048
     Dates: start: 20200109
  6. TRAMETINIB [Suspect]
     Active Substance: TRAMETINIB
     Dosage: 0.3 MG, QD
     Route: 065
     Dates: start: 20200416
  7. TRAMETINIB [Suspect]
     Active Substance: TRAMETINIB
     Dosage: 0.35 MG, QD
     Route: 048
     Dates: start: 20191101
  8. TRAMETINIB [Suspect]
     Active Substance: TRAMETINIB
     Indication: ASTROCYTOMA, LOW GRADE
     Dosage: 0.45 MG
     Route: 048
     Dates: start: 20191004, end: 20200416
  9. TRAMETINIB [Suspect]
     Active Substance: TRAMETINIB
     Dosage: 50% DOSE
     Route: 048
  10. TRAMETINIB [Suspect]
     Active Substance: TRAMETINIB
     Dosage: 0.25 MG, QD
     Route: 048
     Dates: start: 20200325
  11. TRAMETINIB [Suspect]
     Active Substance: TRAMETINIB
     Dosage: 0.35 MG, QD
     Route: 048
     Dates: end: 20200211
  12. TRAMETINIB [Suspect]
     Active Substance: TRAMETINIB
     Dosage: 0.35 MG, QD
     Route: 048
     Dates: end: 20200315

REACTIONS (27)
  - Swelling face [Not Recovered/Not Resolved]
  - Anal fissure [Recovered/Resolved]
  - Pyrexia [Unknown]
  - Malaise [Unknown]
  - White blood cell count increased [Unknown]
  - Respiratory symptom [Recovering/Resolving]
  - Rash [Unknown]
  - Pyrexia [Recovered/Resolved]
  - Diarrhoea [Unknown]
  - Eczema [Recovering/Resolving]
  - Influenza [Recovering/Resolving]
  - Rhinovirus infection [Recovered/Resolved]
  - Blood lactic acid increased [Unknown]
  - Enterovirus infection [Recovered/Resolved]
  - Oral disorder [Recovered/Resolved]
  - Anal haemorrhage [Recovered/Resolved]
  - Anaemia [Recovered/Resolved]
  - Tonsillitis [Not Recovered/Not Resolved]
  - Proctalgia [Recovered/Resolved]
  - Lethargy [Unknown]
  - Angular cheilitis [Recovering/Resolving]
  - Diarrhoea [Recovered/Resolved]
  - Productive cough [Unknown]
  - Lip swelling [Recovering/Resolving]
  - Rash maculo-papular [Recovering/Resolving]
  - Beta haemolytic streptococcal infection [Not Recovered/Not Resolved]
  - Lymphadenopathy [Not Recovered/Not Resolved]

NARRATIVE: CASE EVENT DATE: 20191018
